FAERS Safety Report 21853947 (Version 1)
Quarter: 2023Q1

REPORT INFORMATION
  Report Type: Spontaneous
  Country: US (occurrence: None)
  Receive Date: 20230111
  Receipt Date: 20230111
  Transmission Date: 20230418
  Serious: Yes (Hospitalization)
  Sender: FDA-Public Use
  Company Number: None

PATIENT
  Age: 73 Year
  Sex: Male
  Weight: 82.1 kg

DRUGS (18)
  1. BOSULIF [Suspect]
     Active Substance: BOSUTINIB MONOHYDRATE
     Indication: Chronic myeloid leukaemia
     Dosage: FREQUENCY : DAILY;?
     Route: 048
     Dates: start: 202212
  2. BOSULIF [Suspect]
     Active Substance: BOSUTINIB MONOHYDRATE
     Indication: Philadelphia chromosome positive
  3. ADVAIR DISKUS [Concomitant]
     Active Substance: FLUTICASONE PROPIONATE\SALMETEROL XINAFOATE
  4. ALBUTEROL SULFATE [Concomitant]
     Active Substance: ALBUTEROL SULFATE
  5. AMIODARONE [Concomitant]
     Active Substance: AMIODARONE
  6. ASPIRIN [Concomitant]
     Active Substance: ASPIRIN
  7. COREG [Concomitant]
     Active Substance: CARVEDILOL
  8. FERROUS SULFATE [Concomitant]
     Active Substance: FERROUS SULFATE
  9. FLUTICASONE [Concomitant]
     Active Substance: FLUTICASONE
  10. FOLIC ACID [Concomitant]
     Active Substance: FOLIC ACID
  11. JENTADUETO [Concomitant]
     Active Substance: LINAGLIPTIN\METFORMIN HYDROCHLORIDE
  12. LIPITOR [Concomitant]
     Active Substance: ATORVASTATIN CALCIUM
  13. NORVASC [Concomitant]
     Active Substance: AMLODIPINE BESYLATE
  14. PROTONIX [Concomitant]
     Active Substance: PANTOPRAZOLE SODIUM
  15. SINGULAIR [Concomitant]
     Active Substance: MONTELUKAST SODIUM
  16. VITAMIN D [Concomitant]
     Active Substance: VITAMIN D NOS
  17. XARELTO [Concomitant]
     Active Substance: RIVAROXABAN
  18. ZETIA [Concomitant]
     Active Substance: EZETIMIBE

REACTIONS (3)
  - Pneumonia [None]
  - Dehydration [None]
  - Renal function test abnormal [None]

NARRATIVE: CASE EVENT DATE: 20230110
